FAERS Safety Report 5191319-8 (Version None)
Quarter: 2006Q4

REPORT INFORMATION
  Report Type: 
  Country: None (occurrence: None)
  Receive Date: 20061219
  Receipt Date: 20061219
  Transmission Date: 20070319
  Serious: Yes (Other)
  Sender: FDA-Public Use
  Company Number: None

PATIENT
  Age: 60 Year
  Sex: Male

DRUGS (2)
  1. CLOPIDOGREL [Suspect]
     Indication: CEREBROVASCULAR ACCIDENT PROPHYLAXIS
     Dosage: ONE DAILY
     Dates: start: 20061014
  2. VITAMINS [Concomitant]

REACTIONS (2)
  - ERECTILE DYSFUNCTION [None]
  - SEXUAL DYSFUNCTION [None]
